FAERS Safety Report 12653751 (Version 1)
Quarter: 2016Q3

REPORT INFORMATION
  Report Type: Spontaneous
  Country: CH (occurrence: CH)
  Receive Date: 20160816
  Receipt Date: 20160816
  Transmission Date: 20161109
  Serious: Yes (Other)
  Sender: FDA-Public Use
  Company Number: CH-BAXTER-2016BAX041697

PATIENT
  Age: 0 Year
  Sex: Female
  Weight: 2.44 kg

DRUGS (25)
  1. ENDOXAN 1 G [Suspect]
     Active Substance: CYCLOPHOSPHAMIDE
     Dosage: MOTHER^S DOSE: 600 MG/M2, EC COURSE
     Route: 064
     Dates: start: 20151207
  2. EPIRUBICIN [Suspect]
     Active Substance: EPIRUBICIN
     Dosage: MOTHER^S DOSE: 90 MG/M2, EC COURSE
     Route: 064
     Dates: start: 20151228
  3. ALOXI [Suspect]
     Active Substance: PALONOSETRON HYDROCHLORIDE
     Dosage: MOTHER^S DOSE: 0.25 MG, SINGLE DOSE ON DAY 1 OF EACH EC COURSE
     Route: 064
     Dates: start: 20151207
  4. EMEND [Suspect]
     Active Substance: APREPITANT
     Dosage: MOTHER^S: DOSE: 125 MG, ON DAYS 2 AND 3 OF SECOND COURSE OF EC
     Route: 064
     Dates: end: 20151118
  5. SOLU-MEDROL [Suspect]
     Active Substance: METHYLPREDNISOLONE SODIUM SUCCINATE
     Indication: FOETAL EXPOSURE TIMING UNSPECIFIED
     Dosage: MOTHER^S DOSE: 62.5 MG, SINGLE DOSE ON DAY 1 OF EACH EC COURSE
     Route: 064
     Dates: start: 20151027
  6. SOLU-MEDROL [Suspect]
     Active Substance: METHYLPREDNISOLONE SODIUM SUCCINATE
     Dosage: MOTHER^S DOSE: 62.5 MG, SINGLE DOSE ON DAY 1 OF EACH EC COURSE
     Route: 064
     Dates: start: 20151116
  7. ALOXI [Suspect]
     Active Substance: PALONOSETRON HYDROCHLORIDE
     Dosage: MOTHER^S DOSE: 0.25 MG, SINGLE DOSE ON DAY 1 OF EACH EC COURSE
     Route: 064
     Dates: start: 20151116
  8. ENDOXAN 1 G [Suspect]
     Active Substance: CYCLOPHOSPHAMIDE
     Indication: FOETAL EXPOSURE TIMING UNSPECIFIED
     Dosage: MOTHER^S DOSE: 600 MG/M2, EC COURSE
     Route: 064
     Dates: start: 20151027
  9. ENDOXAN 1 G [Suspect]
     Active Substance: CYCLOPHOSPHAMIDE
     Dosage: MOTHER^S DOSE: 600 MG/M2, EC COURSE
     Route: 064
     Dates: start: 20151228
  10. EPIRUBICIN [Suspect]
     Active Substance: EPIRUBICIN
     Indication: FOETAL EXPOSURE TIMING UNSPECIFIED
     Dosage: MOTHER^S DOSE: 90 MG/M2, EC COURSE
     Route: 064
     Dates: start: 20151027
  11. ALOXI [Suspect]
     Active Substance: PALONOSETRON HYDROCHLORIDE
     Indication: FOETAL EXPOSURE TIMING UNSPECIFIED
     Dosage: MOTHER^S DOSE: 0.25 MG, SINGLE DOSE ON DAY 1 OF EACH EC COURSE
     Route: 064
     Dates: start: 20151027
  12. EMEND [Suspect]
     Active Substance: APREPITANT
     Indication: FOETAL EXPOSURE TIMING UNSPECIFIED
     Dosage: MOTHER^S: DOSE: 125 MG, ON DAY 1 OF FIRST EC COURSE
     Route: 064
     Dates: start: 20151027
  13. TAVEGYL [Suspect]
     Active Substance: CLEMASTINE FUMARATE
     Indication: FOETAL EXPOSURE TIMING UNSPECIFIED
     Dosage: MOTHER^S DOSE: 2 MG, SINGLE DOSE ON DAY 1 OF PACLITAXEL
     Route: 064
     Dates: start: 20160121, end: 20160121
  14. ENDOXAN 1 G [Suspect]
     Active Substance: CYCLOPHOSPHAMIDE
     Dosage: MOTHER^S DOSE: 600 MG/M2, EC COURSE
     Route: 064
     Dates: start: 20151116
  15. SOLU-MEDROL [Suspect]
     Active Substance: METHYLPREDNISOLONE SODIUM SUCCINATE
     Dosage: MOTHER^S DOSE: 62.5 MG, SINGLE DOSE ON DAY 1 OF EACH EC COURSE
     Route: 064
     Dates: start: 20151228
  16. ALOXI [Suspect]
     Active Substance: PALONOSETRON HYDROCHLORIDE
     Dosage: MOTHER^S DOSE: 0.25 MG, SINGLE DOSE ON DAY 1 OF EACH EC COURSE
     Route: 064
     Dates: start: 20151228
  17. MEPHAMESONE [Suspect]
     Active Substance: DEXAMETHASONE
     Indication: FOETAL EXPOSURE TIMING UNSPECIFIED
     Dosage: MOTHER^S DOSE: 8 MG, SINGLE DOSE ON DAY 1 OF PACLITAXEL
     Route: 064
     Dates: start: 20160121, end: 20160121
  18. ZOFRAN [Suspect]
     Active Substance: ONDANSETRON HYDROCHLORIDE
     Indication: FOETAL EXPOSURE TIMING UNSPECIFIED
     Dosage: MOTHER^S DOSE: 8 MG, SINGLE DOSE ON DAY 1 OF PACLITAXEL
     Route: 064
     Dates: start: 20160121, end: 20160121
  19. EPIRUBICIN [Suspect]
     Active Substance: EPIRUBICIN
     Dosage: MOTHER^S DOSE: 90 MG/M2, EC COURSE
     Route: 064
     Dates: start: 20151207
  20. SOLU-MEDROL [Suspect]
     Active Substance: METHYLPREDNISOLONE SODIUM SUCCINATE
     Dosage: MOTHER^S DOSE: 62.5 MG, SINGLE DOSE ON DAY 1 OF EACH EC COURSE
     Route: 064
     Dates: start: 20151207
  21. EMEND [Suspect]
     Active Substance: APREPITANT
     Dosage: MOTHER^S: DOSE: 80 MG, ON DAYS 2 AND 3 OF FIRST COURSE OF EC
     Route: 064
  22. ZANTAC [Suspect]
     Active Substance: RANITIDINE HYDROCHLORIDE
     Indication: FOETAL EXPOSURE TIMING UNSPECIFIED
     Dosage: MOTHER^S DOSE: 50 MG, SINGLE DOSE ON DAY 1 OF PACLITAXEL
     Route: 064
     Dates: start: 20160121, end: 20160121
  23. EPIRUBICIN [Suspect]
     Active Substance: EPIRUBICIN
     Dosage: MOTHER^S DOSE: 90 MG/M2, EC COURSE
     Route: 064
     Dates: start: 20151116
  24. PACLITAXEL. [Suspect]
     Active Substance: PACLITAXEL
     Indication: FOETAL EXPOSURE TIMING UNSPECIFIED
     Dosage: MOTHER^S DOSE: 80 MG/M2, 5 COURSES IN TOTAL DURING PREGNANCY
     Route: 064
     Dates: end: 20160121
  25. EMEND [Suspect]
     Active Substance: APREPITANT
     Dosage: MOTHER^S: DOSE: 125 MG, ON DAY 1 OF SECOND COURSE OF EC
     Route: 064
     Dates: start: 20151116

REACTIONS (2)
  - Foetal exposure during pregnancy [Recovered/Resolved]
  - Premature baby [Recovered/Resolved]

NARRATIVE: CASE EVENT DATE: 20151027
